FAERS Safety Report 10255758 (Version 2)
Quarter: 2014Q3

REPORT INFORMATION
  Report Type: Spontaneous
  Country: IT (occurrence: IT)
  Receive Date: 20140624
  Receipt Date: 20140701
  Transmission Date: 20150326
  Serious: Yes (Hospitalization)
  Sender: FDA-Public Use
  Company Number: IT-TEVA-489254ISR

PATIENT
  Age: 38 Year
  Sex: Female

DRUGS (5)
  1. SEROQUEL [Suspect]
     Active Substance: QUETIAPINE FUMARATE
     Indication: INTENTIONAL SELF-INJURY
     Dosage: 300 MILLIGRAM DAILY;
     Route: 048
     Dates: start: 20140506, end: 20140506
  2. CARBOLITHIUM 300 MG [Suspect]
     Active Substance: LITHIUM CARBONATE
     Indication: INTENTIONAL SELF-INJURY
     Dosage: 300 MILLIGRAM DAILY;
     Route: 048
     Dates: start: 20140506, end: 20140506
  3. TALOFEN 4 G/100 ML [Suspect]
     Active Substance: PROMAZINE HYDROCHLORIDE
     Indication: INTENTIONAL SELF-INJURY
     Dosage: 20 ML DAILY;
     Route: 048
     Dates: start: 20140506, end: 20140506
  4. DEPAKIN CHRONO 500 MG [Suspect]
     Active Substance: VALPROIC ACID
     Indication: INTENTIONAL SELF-INJURY
     Dosage: 500 MILLIGRAM DAILY;
     Route: 048
     Dates: start: 20140506, end: 20140506
  5. DALMADORM 30 MG [Suspect]
     Active Substance: FLURAZEPAM HYDROCHLORIDE
     Indication: INTENTIONAL SELF-INJURY
     Dosage: 600 MILLIGRAM DAILY;
     Route: 048
     Dates: start: 20140506, end: 20140506

REACTIONS (3)
  - Sopor [Recovered/Resolved]
  - Intentional self-injury [Recovered/Resolved]
  - Drug abuse [Recovered/Resolved]

NARRATIVE: CASE EVENT DATE: 20140506
